FAERS Safety Report 13031625 (Version 2)
Quarter: 2016Q4

REPORT INFORMATION
  Report Type: Spontaneous
  Country: GB (occurrence: GB)
  Receive Date: 20161215
  Receipt Date: 20161221
  Transmission Date: 20170207
  Serious: Yes (Death, Life-Threatening, Other)
  Sender: FDA-Public Use
  Company Number: GB-PFIZER INC-2016576313

PATIENT
  Age: 49 Year
  Sex: Female

DRUGS (6)
  1. ZAPONEX [Suspect]
     Active Substance: CLOZAPINE
     Dosage: UNK
     Route: 048
     Dates: start: 20070510, end: 20151215
  2. FLUOROURACIL. [Suspect]
     Active Substance: FLUOROURACIL
     Indication: CHEMOTHERAPY
     Dosage: UNK (GIVEN EVERY 2 WEEKS THROUGHT PCII)
     Dates: start: 201511, end: 201606
  3. ZAPONEX [Suspect]
     Active Substance: CLOZAPINE
     Indication: SCHIZOPHRENIA
     Dosage: 300 MG, 1X/DAY
     Route: 048
     Dates: start: 20160428, end: 20161121
  4. IRINOTECAN HCL [Suspect]
     Active Substance: IRINOTECAN HYDROCHLORIDE
     Indication: CHEMOTHERAPY
     Dosage: UNK, (GIVEN EVERY 2 WEEKS THROUGHT PCII)
     Dates: start: 201511, end: 201606
  5. VENLAFAXINE [Concomitant]
     Active Substance: VENLAFAXINE HYDROCHLORIDE
     Indication: DEPRESSION
     Dosage: 225 MG, UNK
     Route: 048
  6. CODEINE [Concomitant]
     Active Substance: CODEINE
     Indication: ABDOMINAL PAIN
     Dosage: UNK

REACTIONS (16)
  - Basophil count increased [Unknown]
  - Red blood cell nucleated morphology present [Recovered/Resolved]
  - Platelet count increased [Recovered/Resolved]
  - Antipsychotic drug level increased [Not Recovered/Not Resolved]
  - Contraindicated product administered [Recovered/Resolved]
  - Neutrophil count increased [Not Recovered/Not Resolved]
  - Blood alkaline phosphatase increased [Not Recovered/Not Resolved]
  - Chronic kidney disease [Not Recovered/Not Resolved]
  - White blood cell count increased [Not Recovered/Not Resolved]
  - Dehydration [Recovered/Resolved]
  - Blood albumin decreased [Recovered/Resolved]
  - Depressed mood [Not Recovered/Not Resolved]
  - C-reactive protein increased [Not Recovered/Not Resolved]
  - Neoplasm progression [Fatal]
  - Deep vein thrombosis [Unknown]
  - Microcytic anaemia [Not Recovered/Not Resolved]

NARRATIVE: CASE EVENT DATE: 20150722
